FAERS Safety Report 21068981 (Version 1)
Quarter: 2022Q3

REPORT INFORMATION
  Report Type: Spontaneous
  Country: US (occurrence: None)
  Receive Date: 20220711
  Receipt Date: 20220711
  Transmission Date: 20221027
  Serious: Yes (Disabling)
  Sender: FDA-Public Use
  Company Number: None

PATIENT
  Age: 58 Year
  Sex: Male
  Weight: 95.4 kg

DRUGS (1)
  1. TESTOSTERONE CYPIONATE [Suspect]
     Active Substance: TESTOSTERONE CYPIONATE
     Indication: Androgen deficiency
     Dosage: FREQUENCY : WEEKLY;?
     Dates: start: 20220519

REACTIONS (4)
  - Blood testosterone decreased [None]
  - Product quality issue [None]
  - Product storage error [None]
  - Poor quality product administered [None]

NARRATIVE: CASE EVENT DATE: 20220523
